FAERS Safety Report 5249465-6 (Version None)
Quarter: 2007Q1

REPORT INFORMATION
  Report Type: 
  Country: None (occurrence: None)
  Receive Date: 20070228
  Receipt Date: 20061110
  Transmission Date: 20070707
  Serious: No
  Sender: FDA-Public Use
  Company Number: US-GLAXOSMITHKLINE-A0627037A

PATIENT
  Age: 4 Month
  Sex: Female

DRUGS (1)
  1. VALTREX [Suspect]
     Dosage: 500MG TWICE PER DAY
     Dates: start: 20061024, end: 20061027

REACTIONS (1)
  - DRUG EXPOSURE VIA BREAST MILK [None]
